FAERS Safety Report 8260650-1 (Version None)
Quarter: 2012Q2

REPORT INFORMATION
  Report Type: 
  Country: None (occurrence: None)
  Receive Date: 20120405
  Receipt Date: 20120330
  Transmission Date: 20120825
  Serious: Yes (Hospitalization)
  Sender: FDA-Public Use
  Company Number: PL-AMGEN-POLSP2012019675

PATIENT
  Sex: Female
  Weight: 68 kg

DRUGS (2)
  1. METYPRED                           /00049601/ [Concomitant]
     Indication: SYSTEMIC LUPUS ERYTHEMATOSUS
     Dosage: 8 MG, QD
     Route: 048
     Dates: start: 20110124
  2. PROLIA [Suspect]
     Indication: OSTEOPOROSIS
     Dosage: 60 MG, UNK
     Route: 058
     Dates: start: 20110916, end: 20110916

REACTIONS (2)
  - DERMATITIS [None]
  - INFLAMMATION [None]
